FAERS Safety Report 23634049 (Version 2)
Quarter: 2024Q2

REPORT INFORMATION
  Report Type: Report from Study
  Country: MX (occurrence: MX)
  Receive Date: 20240314
  Receipt Date: 20240406
  Transmission Date: 20240716
  Serious: Yes (Other)
  Sender: FDA-Public Use
  Company Number: MX-002147023-NVSC2024MX053679

PATIENT
  Age: 35 Year
  Sex: Female
  Weight: 93 kg

DRUGS (1)
  1. GILENYA [Suspect]
     Active Substance: FINGOLIMOD HYDROCHLORIDE
     Indication: Multiple sclerosis
     Dosage: 0.5 MG, QD
     Route: 048
     Dates: start: 20231130

REACTIONS (8)
  - Liver injury [Unknown]
  - Urinary tract infection [Unknown]
  - Decreased immune responsiveness [Unknown]
  - Fatigue [Not Recovered/Not Resolved]
  - Influenza [Recovered/Resolved]
  - Pyrexia [Recovered/Resolved]
  - Cough [Recovered/Resolved]
  - Blood bilirubin abnormal [Unknown]

NARRATIVE: CASE EVENT DATE: 20240201
